FAERS Safety Report 8131549-6 (Version None)
Quarter: 2012Q1

REPORT INFORMATION
  Report Type: 
  Country: None (occurrence: None)
  Receive Date: 20120213
  Receipt Date: 20120202
  Transmission Date: 20120608
  Serious: Yes (Other)
  Sender: FDA-Public Use
  Company Number: US-JNJFOC-20120202379

PATIENT
  Sex: Female

DRUGS (7)
  1. LEUCOVORIN CALCIUM [Concomitant]
  2. SIMPONI [Suspect]
     Indication: ANKYLOSING SPONDYLITIS
     Route: 058
     Dates: start: 20100101, end: 20120101
  3. ZYRTEC [Concomitant]
  4. THYROID TAB [Concomitant]
     Dates: start: 20090101
  5. ACCOLATE [Concomitant]
  6. FOLIC ACID [Concomitant]
  7. METHOTREXATE [Concomitant]

REACTIONS (5)
  - RASH [None]
  - ABDOMINAL PAIN UPPER [None]
  - PYREXIA [None]
  - VOMITING [None]
  - BONE GRAFT [None]
